FAERS Safety Report 10422486 (Version 1)
Quarter: 2014Q3

REPORT INFORMATION
  Report Type: Spontaneous
  Country: FR (occurrence: FR)
  Receive Date: 20140901
  Receipt Date: 20140901
  Transmission Date: 20150326
  Serious: Yes (Death, Hospitalization)
  Sender: FDA-Public Use
  Company Number: FR-ASTRAZENECA-2014SE64773

PATIENT
  Age: 31383 Day
  Sex: Male

DRUGS (5)
  1. TOPALGIC [Suspect]
     Active Substance: TRAMADOL
     Indication: PAIN
     Route: 048
     Dates: start: 20140113
  2. KARDEGIC [Suspect]
     Active Substance: ASPIRIN LYSINE
     Indication: PERIPHERAL ISCHAEMIA
     Route: 048
     Dates: start: 20140112
  3. XARELTO [Suspect]
     Active Substance: RIVAROXABAN
     Indication: PERIPHERAL ISCHAEMIA
     Route: 048
     Dates: start: 20140112, end: 20140113
  4. CRESTOR [Suspect]
     Active Substance: ROSUVASTATIN CALCIUM
     Route: 048
     Dates: start: 20140112
  5. DAFALGAN [Suspect]
     Active Substance: ACETAMINOPHEN
     Indication: PAIN
     Route: 048
     Dates: start: 20140113

REACTIONS (5)
  - Cerebrovascular accident [Fatal]
  - Renal failure acute [Unknown]
  - Proteinuria [Unknown]
  - Leukocyturia [Unknown]
  - Haematuria [Unknown]

NARRATIVE: CASE EVENT DATE: 20140113
